FAERS Safety Report 25298573 (Version 1)
Quarter: 2025Q2

REPORT INFORMATION
  Report Type: Spontaneous
  Country: MX (occurrence: MX)
  Receive Date: 20250512
  Receipt Date: 20250512
  Transmission Date: 20250717
  Serious: Yes (Death, Other)
  Sender: NOVO NORDISK
  Company Number: MX-NOVOPROD-1423273

PATIENT
  Age: 73 Year
  Sex: Male

DRUGS (1)
  1. RYBELSUS [Suspect]
     Active Substance: SEMAGLUTIDE
     Indication: Diabetes mellitus
     Dosage: 7 MG, QD (AT NIGHT)
     Dates: start: 20241101, end: 20250416

REACTIONS (3)
  - Gastrointestinal haemorrhage [Fatal]
  - Acute hepatic failure [Fatal]
  - Inappropriate schedule of product administration [Recovered/Resolved]

NARRATIVE: CASE EVENT DATE: 20241101
